FAERS Safety Report 24995565 (Version 1)
Quarter: 2025Q1

REPORT INFORMATION
  Report Type: Spontaneous
  Country: US (occurrence: US)
  Receive Date: 20250221
  Receipt Date: 20250221
  Transmission Date: 20250408
  Serious: No
  Sender: ABBVIE
  Company Number: US-ABBVIE-6138328

PATIENT
  Sex: Male

DRUGS (1)
  1. SYNTHROID [Suspect]
     Active Substance: LEVOTHYROXINE SODIUM
     Indication: Product used for unknown indication
     Route: 048

REACTIONS (15)
  - Blood glucose decreased [Unknown]
  - Blood cholesterol increased [Unknown]
  - Cognitive disorder [Unknown]
  - Dry skin [Unknown]
  - Eczema [Unknown]
  - Alopecia [Unknown]
  - Urticaria [Not Recovered/Not Resolved]
  - Product quality issue [Unknown]
  - Insomnia [Unknown]
  - Specific gravity urine decreased [Unknown]
  - Therapeutic product effect incomplete [Not Recovered/Not Resolved]
  - White blood cells urine positive [Unknown]
  - Blood zinc decreased [Unknown]
  - Renal disorder [Unknown]
  - Temperature regulation disorder [Unknown]
